FAERS Safety Report 19587910 (Version 1)
Quarter: 2021Q3

REPORT INFORMATION
  Report Type: Spontaneous
  Country: US (occurrence: US)
  Receive Date: 20210720
  Receipt Date: 20210720
  Transmission Date: 20211014
  Serious: Yes (Hospitalization)
  Sender: FDA-Public Use
  Company Number: None

PATIENT
  Sex: Male
  Weight: 15.5 kg

DRUGS (5)
  1. ZINECARD [Concomitant]
     Active Substance: DEXRAZOXANE HYDROCHLORIDE
  2. 5?FLUOROURACIL [Suspect]
     Active Substance: FLUOROURACIL
  3. CISPLATIN. [Concomitant]
     Active Substance: CISPLATIN
  4. DOXORUBICIN HYDROCHLORIDE. [Concomitant]
     Active Substance: DOXORUBICIN HYDROCHLORIDE
  5. VINCRISTTINE SULFATE [Concomitant]

REACTIONS (13)
  - Pulmonary fibrosis [None]
  - Condition aggravated [None]
  - Coagulopathy [None]
  - Respiratory distress [None]
  - Haemophagocytic lymphohistiocytosis [None]
  - Lung infiltration [None]
  - Splenic lesion [None]
  - Hepatosplenomegaly [None]
  - Pyrexia [None]
  - Inflammatory marker increased [None]
  - Pulmonary mass [None]
  - Infection [None]
  - Measles [None]

NARRATIVE: CASE EVENT DATE: 20210716
